FAERS Safety Report 11186597 (Version 2)
Quarter: 2015Q2

REPORT INFORMATION
  Report Type: Spontaneous
  Country: JP (occurrence: JP)
  Receive Date: 20150613
  Receipt Date: 20150619
  Transmission Date: 20150821
  Serious: Yes (Death)
  Sender: FDA-Public Use
  Company Number: PHJP2015JP009690

PATIENT
  Age: 89 Year
  Sex: Female

DRUGS (1)
  1. EXELON PATCH [Suspect]
     Active Substance: RIVASTIGMINE
     Indication: DEMENTIA ALZHEIMER^S TYPE
     Dosage: 9.5 MG/24H (18 MG DAILY RIVASTIGMINE BASE, PATCH 10 CM2)
     Route: 062

REACTIONS (4)
  - Pyelonephritis [Fatal]
  - Sepsis [Fatal]
  - Infection [Fatal]
  - Dementia Alzheimer^s type [Fatal]
